FAERS Safety Report 25383972 (Version 1)
Quarter: 2025Q2

REPORT INFORMATION
  Report Type: Spontaneous
  Country: BE (occurrence: BE)
  Receive Date: 20250602
  Receipt Date: 20250602
  Transmission Date: 20250716
  Serious: Yes (Disabling)
  Sender: UCB
  Company Number: None

PATIENT
  Age: 48 Year
  Sex: Female

DRUGS (2)
  1. KEPPRA [Suspect]
     Active Substance: LEVETIRACETAM
     Indication: Product used for unknown indication
  2. CENOBAMATE [Suspect]
     Active Substance: CENOBAMATE
     Indication: Partial seizures
     Dosage: 1 DOSAGE FORM, ONCE DAILY (QD), PROGRESSIVE DOSAGE REDUCING KEPPRA
     Route: 048

REACTIONS (5)
  - Fatigue [Not Recovered/Not Resolved]
  - Dysarthria [Not Recovered/Not Resolved]
  - Visual impairment [Not Recovered/Not Resolved]
  - Enuresis [Recovered/Resolved]
  - Somnolence [Not Recovered/Not Resolved]
